FAERS Safety Report 21435915 (Version 1)
Quarter: 2022Q4

REPORT INFORMATION
  Report Type: Spontaneous
  Country: IN (occurrence: IN)
  Receive Date: 20221010
  Receipt Date: 20221010
  Transmission Date: 20230113
  Serious: Yes (Other)
  Sender: FDA-Public Use
  Company Number: IN-MYLANLABS-2022M1111686

PATIENT
  Sex: Female

DRUGS (2)
  1. ESOMEPRAZOLE [Suspect]
     Active Substance: ESOMEPRAZOLE
     Indication: Dyspepsia
     Dosage: UNK
     Route: 065
  2. ACOTIAMIDE HYDROCHLORIDE [Suspect]
     Active Substance: ACOTIAMIDE HYDROCHLORIDE
     Indication: Dyspepsia
     Dosage: UNK
     Route: 065

REACTIONS (1)
  - Heavy menstrual bleeding [Unknown]
